FAERS Safety Report 7262453-3 (Version None)
Quarter: 2011Q1

REPORT INFORMATION
  Report Type: 
  Country: None (occurrence: None)
  Receive Date: 20110130
  Receipt Date: 20101213
  Transmission Date: 20110831
  Serious: No
  Sender: FDA-Public Use
  Company Number: US-ABBOTT-10P-163-0686440-00

PATIENT
  Age: 67 Year
  Sex: Female

DRUGS (6)
  1. HYDROCHLOROTHIAZIDE [Concomitant]
     Indication: HYPERTENSION
     Route: 048
  2. METHOTREXATE [Concomitant]
     Indication: PRODUCT USED FOR UNKNOWN INDICATION
     Route: 048
  3. ATENOLOL [Concomitant]
     Indication: HYPERTENSION
     Route: 048
  4. FOLIC ACID [Concomitant]
     Indication: PRODUCT USED FOR UNKNOWN INDICATION
     Dosage: UNKNOWN DOSAGE
  5. SYNTHROID [Concomitant]
     Indication: THYROID FUNCTION TEST ABNORMAL
     Route: 048
  6. HUMIRA [Suspect]
     Indication: PSORIASIS
     Dates: start: 20100803

REACTIONS (3)
  - PRURITUS GENERALISED [None]
  - INJECTION SITE PAIN [None]
  - INJECTION SITE PRURITUS [None]
